FAERS Safety Report 18307502 (Version 1)
Quarter: 2020Q3

REPORT INFORMATION
  Report Type: Spontaneous
  Country: CN (occurrence: CN)
  Receive Date: 20200924
  Receipt Date: 20200924
  Transmission Date: 20201103
  Serious: Yes (Hospitalization)
  Sender: FDA-Public Use
  Company Number: CN-PFIZER INC-2020363549

PATIENT
  Age: 72 Year
  Sex: Male

DRUGS (2)
  1. SPIRAMYCIN [Interacting]
     Active Substance: SPIRAMYCIN
     Dosage: 0.6 G, DAILY
     Route: 048
  2. ATORVASTATIN CALCIUM. [Suspect]
     Active Substance: ATORVASTATIN CALCIUM
     Indication: HYPERLIPIDAEMIA
     Dosage: 20 MG, DAILY

REACTIONS (2)
  - Drug interaction [Recovering/Resolving]
  - Dermatomyositis [Recovering/Resolving]
